FAERS Safety Report 7632751-X (Version None)
Quarter: 2011Q3

REPORT INFORMATION
  Report Type: 
  Country: None (occurrence: None)
  Receive Date: 20110725
  Receipt Date: 20101222
  Transmission Date: 20111222
  Serious: No
  Sender: FDA-Public Use
  Company Number: US-BRISTOL-MYERS SQUIBB COMPANY-15457237

PATIENT
  Age: 70 Year
  Sex: Male
  Weight: 113 kg

DRUGS (15)
  1. LOVAZA [Concomitant]
     Indication: CARDIAC FAILURE CONGESTIVE
     Dates: start: 20020101
  2. MULTI-VITAMIN [Concomitant]
     Dates: start: 20020101
  3. NIASPAN [Concomitant]
     Indication: CARDIAC FAILURE CONGESTIVE
     Dates: start: 20020101
  4. FUROSEMIDE [Concomitant]
     Indication: CARDIAC FAILURE CONGESTIVE
     Dates: start: 20020101
  5. UBIDECARENONE [Concomitant]
     Dates: start: 20020101
  6. ASPIRIN [Suspect]
     Indication: CARDIAC FAILURE CONGESTIVE
     Dates: start: 20020101
  7. VYTORIN [Concomitant]
     Indication: CARDIAC FAILURE CONGESTIVE
     Dates: start: 20020101
  8. SERTRALINE HYDROCHLORIDE [Concomitant]
     Dates: start: 20020101
  9. MAGNESIUM OXIDE [Concomitant]
     Dates: start: 20020101
  10. VITAMIN B-12 [Concomitant]
     Dates: start: 20020101
  11. COUMADIN [Suspect]
     Indication: CARDIAC FAILURE CONGESTIVE
     Route: 048
     Dates: start: 20020101
  12. TESTIM [Suspect]
     Indication: BLOOD TESTOSTERONE DECREASED
     Route: 062
     Dates: start: 20101130, end: 20101205
  13. SOTALOL HCL [Concomitant]
     Indication: CARDIAC FAILURE CONGESTIVE
     Dates: start: 20020101
  14. ASCORBIC ACID [Concomitant]
     Dates: start: 20020101
  15. ANAPRIN [Suspect]
     Indication: CARDIAC FAILURE CONGESTIVE
     Dates: start: 20020101

REACTIONS (2)
  - ECCHYMOSIS [None]
  - CONTUSION [None]
